FAERS Safety Report 14280278 (Version 1)
Quarter: 2017Q4

REPORT INFORMATION
  Report Type: Spontaneous
  Country: US (occurrence: US)
  Receive Date: 20171212
  Receipt Date: 20171212
  Transmission Date: 20180321
  Serious: Yes (Death)
  Sender: FDA-Public Use
  Company Number: None

PATIENT
  Age: 71 Year
  Sex: Male

DRUGS (16)
  1. ASPIRIN. [Concomitant]
     Active Substance: ASPIRIN
  2. CIPROFLOXACN [Concomitant]
     Active Substance: CIPROFLOXACIN
  3. MACROBID [Concomitant]
     Active Substance: NITROFURANTOIN\NITROFURANTOIN MONOHYDRATE
  4. CARBIDOPA. [Concomitant]
     Active Substance: CARBIDOPA
  5. CRANBERRY. [Concomitant]
     Active Substance: CRANBERRY
  6. LISINOPRIL. [Concomitant]
     Active Substance: LISINOPRIL
  7. VITAMIN C [Concomitant]
     Active Substance: ASCORBIC ACID
  8. LEVEMIR [Concomitant]
     Active Substance: INSULIN DETEMIR
  9. QUETIAPINE. [Concomitant]
     Active Substance: QUETIAPINE
  10. RIVASTIGMINE. [Concomitant]
     Active Substance: RIVASTIGMINE
  11. VITAMIN D CHILD CHEWABLE [Concomitant]
  12. MEMANTINE. [Concomitant]
     Active Substance: MEMANTINE
  13. NOVOLIN [Concomitant]
     Active Substance: INSULIN HUMAN
  14. NUPLAZID [Suspect]
     Active Substance: PIMAVANSERIN TARTRATE
     Indication: PARKINSON^S DISEASE PSYCHOSIS
     Route: 048
     Dates: start: 20170817, end: 20171210
  15. METFORMIN [Concomitant]
     Active Substance: METFORMIN HYDROCHLORIDE
  16. VITAMIN E [Concomitant]
     Active Substance: .ALPHA.-TOCOPHEROL

REACTIONS (1)
  - Death [None]

NARRATIVE: CASE EVENT DATE: 20171210
